FAERS Safety Report 8811554 (Version 1)
Quarter: 2012Q4

REPORT INFORMATION
  Report Type: 
  Country: US (occurrence: US)
  Receive Date: 20120927
  Receipt Date: 20120927
  Transmission Date: 20130627
  Serious: Yes (Other)
  Sender: FDA-Public Use
  Company Number: US-JNJFOC-20120909101

PATIENT
  Sex: Female
  Weight: 54.43 kg

DRUGS (3)
  1. INVEGA [Suspect]
     Indication: SCHIZOAFFECTIVE DISORDER
     Route: 048
     Dates: start: 2010, end: 2010
  2. COGENTIN [Suspect]
     Indication: DYSKINESIA
     Route: 065
     Dates: end: 2012
  3. DOXEPIN [Concomitant]
     Indication: SCHIZOAFFECTIVE DISORDER
     Route: 065
     Dates: start: 2010, end: 2012

REACTIONS (2)
  - Dyskinesia [Not Recovered/Not Resolved]
  - Blindness [Not Recovered/Not Resolved]
